FAERS Safety Report 10149627 (Version 1)
Quarter: 2014Q2

REPORT INFORMATION
  Report Type: Spontaneous
  Country: US (occurrence: None)
  Receive Date: 20140501
  Receipt Date: 20140501
  Transmission Date: 20141212
  Serious: Yes (Hospitalization, Other)
  Sender: FDA-Public Use
  Company Number: None

PATIENT
  Age: 42 Year
  Sex: Female
  Weight: 63.5 kg

DRUGS (8)
  1. LEVOFLOXACIN [Suspect]
     Indication: UPPER RESPIRATORY TRACT INFECTION
     Route: 048
     Dates: start: 20140421, end: 20140421
  2. OMEGA 3 OIL [Concomitant]
  3. ENVIRONMENTAL DETOX [Concomitant]
  4. VIT D [Concomitant]
  5. VIT C [Concomitant]
  6. CHLOROPHYLL [Concomitant]
  7. PRO-BIOTICS [Concomitant]
  8. KIDNEY AND LIVER DETOX SUPPLEMENT [Concomitant]

REACTIONS (11)
  - Hypoaesthesia [None]
  - Paraesthesia [None]
  - Diarrhoea [None]
  - Palpitations [None]
  - Flushing [None]
  - Nausea [None]
  - Decreased appetite [None]
  - Tinnitus [None]
  - Fatigue [None]
  - Asthenia [None]
  - Hypoaesthesia [None]
